FAERS Safety Report 7313742-5 (Version None)
Quarter: 2011Q1

REPORT INFORMATION
  Report Type: 
  Country: None (occurrence: None)
  Receive Date: 20110215
  Receipt Date: 20110215
  Transmission Date: 20110831
  Serious: Yes (Hospitalization)
  Sender: FDA-Public Use
  Company Number: None

PATIENT
  Age: 25 Year
  Sex: Female

DRUGS (2)
  1. SUMATRIPTAN 100MG DR REDDYS [Suspect]
     Indication: MIGRAINE
     Dosage: ONE AT ONSET OF HEADACHE. MAY REPEAT 1X AFTER 1 TO 2 HRS. MAX OF 200MG /24 HRS
  2. CELEXA [Concomitant]

REACTIONS (5)
  - HYPERHIDROSIS [None]
  - THROAT TIGHTNESS [None]
  - HEART RATE INCREASED [None]
  - NAUSEA [None]
  - ORAL DISORDER [None]
